FAERS Safety Report 10912774 (Version 1)
Quarter: 2015Q1

REPORT INFORMATION
  Report Type: Spontaneous
  Country: US (occurrence: US)
  Receive Date: 20150313
  Receipt Date: 20150313
  Transmission Date: 20150721
  Serious: Yes (Hospitalization, Other)
  Sender: FDA-Public Use
  Company Number: US-PFIZER INC-2015088467

PATIENT
  Age: 41 Year
  Sex: Female
  Weight: 127 kg

DRUGS (3)
  1. DILANTIN [Suspect]
     Active Substance: PHENYTOIN
     Indication: SEIZURE
     Dosage: 300 MG, 3X/DAY
     Dates: end: 20150302
  2. LAMICTAL [Concomitant]
     Active Substance: LAMOTRIGINE
     Dosage: 275 MG, 2X/DAY
  3. KLONOPIN [Concomitant]
     Active Substance: CLONAZEPAM
     Indication: SEIZURE
     Dosage: 0.5 MG 2X/DAY, AS NEEDED

REACTIONS (4)
  - Dystonia [Unknown]
  - Anticonvulsant drug level abnormal [Not Recovered/Not Resolved]
  - Dystonia [Not Recovered/Not Resolved]
  - Generalised tonic-clonic seizure [Not Recovered/Not Resolved]

NARRATIVE: CASE EVENT DATE: 201501
